FAERS Safety Report 14364001 (Version 2)
Quarter: 2019Q3

REPORT INFORMATION
  Report Type: Spontaneous
  Country: FR (occurrence: FR)
  Receive Date: 20180108
  Receipt Date: 20190819
  Transmission Date: 20191004
  Serious: Yes (Other)
  Sender: FDA-Public Use
  Company Number: FR-TEVA-2018-FR-844999

PATIENT
  Age: 36 Year
  Sex: Female
  Weight: 55 kg

DRUGS (5)
  1. LAMOTRIGINE DISPERSIBLE TABLET [Suspect]
     Active Substance: LAMOTRIGINE
     Dosage: 550 MG, QD
     Route: 048
     Dates: start: 20170930, end: 20171107
  2. LAMOTRIGINE DISPERSIBLE TABLET [Suspect]
     Active Substance: LAMOTRIGINE
     Dosage: 600 MG, QD
     Route: 048
     Dates: start: 20171107
  3. LAMOTRIGINE DISPERSIBLE TABLET [Suspect]
     Active Substance: LAMOTRIGINE
     Dosage: 450 MG, QD
     Route: 048
     Dates: start: 2003, end: 20170831
  4. LAMOTRIGINE DISPERSIBLE TABLET [Suspect]
     Active Substance: LAMOTRIGINE
     Indication: EPILEPSY
     Dosage: 500 MG, QD
     Route: 048
     Dates: start: 20170831, end: 20170930
  5. FOLIC ACID TABLET [Concomitant]
     Active Substance: FOLIC ACID
     Indication: PRODUCT USED FOR UNKNOWN INDICATION
     Dosage: 0.4 MG, QD
     Route: 048
     Dates: start: 20160801, end: 20170720

REACTIONS (4)
  - Maternal exposure during pregnancy [Unknown]
  - Epilepsy [Unknown]
  - Off label use [Unknown]
  - Maternal exposure before pregnancy [Unknown]
